FAERS Safety Report 7515985-4 (Version None)
Quarter: 2011Q2

REPORT INFORMATION
  Report Type: 
  Country: None (occurrence: None)
  Receive Date: 20110526
  Receipt Date: 20110526
  Transmission Date: 20111010
  Serious: No
  Sender: FDA-Public Use
  Company Number: None

PATIENT
  Sex: Female

DRUGS (1)
  1. AVONEX [Suspect]
     Indication: MULTIPLE SCLEROSIS
     Dosage: 30MCG QW INTRAMUSCULAR
     Route: 030
     Dates: start: 20080122, end: 20110324

REACTIONS (3)
  - DRUG INEFFECTIVE [None]
  - CONDITION AGGRAVATED [None]
  - DEPRESSION [None]
